FAERS Safety Report 8061823-3 (Version None)
Quarter: 2012Q1

REPORT INFORMATION
  Report Type: 
  Country: None (occurrence: None)
  Receive Date: 20120123
  Receipt Date: 20120112
  Transmission Date: 20120608
  Serious: No
  Sender: FDA-Public Use
  Company Number: US-PFIZER INC-2012014244

PATIENT
  Age: 53 Year
  Sex: Male
  Weight: 99.773 kg

DRUGS (5)
  1. COLLAGENASE CLOSTRIDIUM HISTOLYTICUM [Suspect]
     Dosage: 1 IN 1 D
     Route: 026
  2. COLLAGENASE CLOSTRIDIUM HISTOLYTICUM [Suspect]
     Dosage: 1 IN 1 D
     Route: 026
  3. COLLAGENASE CLOSTRIDIUM HISTOLYTICUM [Suspect]
     Indication: DUPUYTREN'S CONTRACTURE
     Dosage: 1 IN 1 D
     Route: 026
     Dates: start: 20120101, end: 20120101
  4. TESTOSTERONE CYPIONATE [Suspect]
     Dosage: UNK
  5. COLLAGENASE CLOSTRIDIUM HISTOLYTICUM [Suspect]
     Dosage: 1 IN 1 D
     Route: 026
     Dates: start: 20110501, end: 20110501

REACTIONS (1)
  - DRUG INEFFECTIVE [None]
